FAERS Safety Report 11769386 (Version 2)
Quarter: 2016Q1

REPORT INFORMATION
  Report Type: Spontaneous
  Country: GB (occurrence: GB)
  Receive Date: 20151123
  Receipt Date: 20160328
  Transmission Date: 20160525
  Serious: Yes (Other)
  Sender: FDA-Public Use
  Company Number: GB-BAYER-2015-468097

PATIENT
  Age: 44 Year
  Sex: Female

DRUGS (1)
  1. BETAFERON [Suspect]
     Active Substance: INTERFERON BETA-1B
     Indication: MULTIPLE SCLEROSIS
     Dosage: 250 ?G, QOD
     Route: 058
     Dates: start: 20091207, end: 20151006

REACTIONS (10)
  - Fatigue [Recovering/Resolving]
  - Hypoacusis [Recovering/Resolving]
  - Visual acuity reduced [None]
  - Hypersomnia [Recovering/Resolving]
  - Impaired self-care [Recovering/Resolving]
  - Lymphadenopathy [Recovering/Resolving]
  - Vascular pain [Recovering/Resolving]
  - Alopecia [Recovering/Resolving]
  - Feeling abnormal [Recovering/Resolving]
  - Local swelling [None]
